FAERS Safety Report 15142562 (Version 1)
Quarter: 2018Q3

REPORT INFORMATION
  Report Type: Spontaneous
  Country: US (occurrence: US)
  Receive Date: 20180713
  Receipt Date: 20180713
  Transmission Date: 20181010
  Serious: Yes (Hospitalization)
  Sender: FDA-Public Use
  Company Number: US-CELLTRION INC.-2018US019659

PATIENT

DRUGS (2)
  1. INFLECTRA [Suspect]
     Active Substance: INFLIXIMAB-DYYB
     Dosage: UNK
     Route: 065
     Dates: start: 20180413, end: 20180413
  2. INFLECTRA [Suspect]
     Active Substance: INFLIXIMAB-DYYB
     Indication: CROHN^S DISEASE
     Dosage: EVERY 8 WEEKS (MAYBE)
     Route: 042
     Dates: start: 201802, end: 201802

REACTIONS (3)
  - Large intestinal stenosis [Unknown]
  - Inflammation [Unknown]
  - Drug prescribing error [Unknown]
